FAERS Safety Report 5876468-0 (Version None)
Quarter: 2008Q3

REPORT INFORMATION
  Report Type: 
  Country: None (occurrence: None)
  Receive Date: 20080910
  Receipt Date: 20080908
  Transmission Date: 20090109
  Serious: Yes (Death)
  Sender: FDA-Public Use
  Company Number: A0745679A

PATIENT
  Age: 79 Year
  Sex: Female

DRUGS (2)
  1. REQUIP [Suspect]
     Indication: DEMENTIA
     Route: 048
  2. CONCURRENT MEDICATIONS [Concomitant]

REACTIONS (4)
  - BALANCE DISORDER [None]
  - DEATH [None]
  - DIZZINESS [None]
  - FALL [None]
